FAERS Safety Report 13995259 (Version 4)
Quarter: 2022Q2

REPORT INFORMATION
  Report Type: Report from Study
  Country: US (occurrence: None)
  Receive Date: 20170921
  Receipt Date: 20220421
  Transmission Date: 20220721
  Serious: Yes (Hospitalization, Other)
  Sender: FDA-Public Use
  Company Number: US-ROCHE-1994555

PATIENT
  Age: 78 Year
  Sex: Male
  Weight: 74.910 kg

DRUGS (40)
  1. VENETOCLAX [Suspect]
     Active Substance: VENETOCLAX
     Indication: Diffuse large B-cell lymphoma
     Dosage: ON DAYS 3-12 IN CYCLE 1, AND DAYS 1-10 WITH ALL SUBSEQUENT CYCLES
     Route: 048
     Dates: start: 20170811, end: 20170818
  2. RITUXIMAB [Suspect]
     Active Substance: RITUXIMAB
     Indication: Diffuse large B-cell lymphoma
     Dosage: ON DAY 1 OF EACH CYCLE; THE FIRST RITUXIMAB INFUSION SHOULD BE STARTED AT 50 MG/HR, AND INCREASED IN
     Route: 041
     Dates: start: 20170809
  3. ETOPOSIDE [Suspect]
     Active Substance: ETOPOSIDE
     Indication: Diffuse large B-cell lymphoma
     Dosage: GIVEN FOR A TOTAL OF 6 CYCLES?TIME: 21:30
     Route: 042
     Dates: start: 20170809
  4. ETOPOSIDE [Suspect]
     Active Substance: ETOPOSIDE
     Dosage: TIME: 07:20
     Route: 042
     Dates: start: 20170810
  5. ETOPOSIDE [Suspect]
     Active Substance: ETOPOSIDE
     Dosage: TIME: 19:08
     Route: 042
     Dates: start: 20170810
  6. ETOPOSIDE [Suspect]
     Active Substance: ETOPOSIDE
     Dosage: TIME: 22:05
     Route: 042
     Dates: start: 20170810
  7. ETOPOSIDE [Suspect]
     Active Substance: ETOPOSIDE
     Dosage: TIME: 07:20
     Route: 042
     Dates: start: 20170811
  8. ETOPOSIDE [Suspect]
     Active Substance: ETOPOSIDE
     Dosage: TIME: 18:50
     Route: 042
     Dates: start: 20170811
  9. ETOPOSIDE [Suspect]
     Active Substance: ETOPOSIDE
     Dosage: TIME: 22:04
     Route: 042
     Dates: start: 20170811
  10. ETOPOSIDE [Suspect]
     Active Substance: ETOPOSIDE
     Dosage: TIME: 07:01
     Route: 042
     Dates: start: 20170812
  11. ETOPOSIDE [Suspect]
     Active Substance: ETOPOSIDE
     Dosage: TIME: 20:00
     Route: 042
     Dates: start: 20170812
  12. ETOPOSIDE [Suspect]
     Active Substance: ETOPOSIDE
     Dosage: TIME: 22:27
     Route: 042
     Dates: start: 20170812
  13. ETOPOSIDE [Suspect]
     Active Substance: ETOPOSIDE
     Dosage: TIME: 07:30
     Route: 042
     Dates: start: 20170813
  14. ETOPOSIDE [Suspect]
     Active Substance: ETOPOSIDE
     Dosage: TIME: 19:45
     Route: 042
     Dates: start: 20170813
  15. DOXORUBICIN HYDROCHLORIDE [Suspect]
     Active Substance: DOXORUBICIN HYDROCHLORIDE
     Indication: Diffuse large B-cell lymphoma
     Dosage: GIVEN FOR A TOTAL OF 6 CYCLES?TIME: 21:30
     Route: 042
     Dates: start: 20170809
  16. DOXORUBICIN HYDROCHLORIDE [Suspect]
     Active Substance: DOXORUBICIN HYDROCHLORIDE
     Dosage: TIME: 07:20
     Route: 042
     Dates: start: 20170810
  17. DOXORUBICIN HYDROCHLORIDE [Suspect]
     Active Substance: DOXORUBICIN HYDROCHLORIDE
     Dosage: TIME: 19:08
     Route: 042
     Dates: start: 20170810
  18. DOXORUBICIN HYDROCHLORIDE [Suspect]
     Active Substance: DOXORUBICIN HYDROCHLORIDE
     Dosage: TIME: 22:05
     Route: 042
     Dates: start: 20170810
  19. DOXORUBICIN HYDROCHLORIDE [Suspect]
     Active Substance: DOXORUBICIN HYDROCHLORIDE
     Dosage: TIME: 07:20
     Route: 042
     Dates: start: 20170811
  20. DOXORUBICIN HYDROCHLORIDE [Suspect]
     Active Substance: DOXORUBICIN HYDROCHLORIDE
     Dosage: TIME: 18:50
     Route: 042
     Dates: start: 20170811
  21. DOXORUBICIN HYDROCHLORIDE [Suspect]
     Active Substance: DOXORUBICIN HYDROCHLORIDE
     Dosage: TIME: 22:04
     Route: 042
     Dates: start: 20170811
  22. DOXORUBICIN HYDROCHLORIDE [Suspect]
     Active Substance: DOXORUBICIN HYDROCHLORIDE
     Dosage: TIME: 07:01
     Route: 042
     Dates: start: 20170812
  23. DOXORUBICIN HYDROCHLORIDE [Suspect]
     Active Substance: DOXORUBICIN HYDROCHLORIDE
     Dosage: TIME: 20:00
     Route: 042
     Dates: start: 20170812
  24. DOXORUBICIN HYDROCHLORIDE [Suspect]
     Active Substance: DOXORUBICIN HYDROCHLORIDE
     Dosage: TIME: 22:27
     Route: 042
     Dates: start: 20170812
  25. DOXORUBICIN HYDROCHLORIDE [Suspect]
     Active Substance: DOXORUBICIN HYDROCHLORIDE
     Dosage: TIME: 07:30
     Route: 042
     Dates: start: 20170813
  26. DOXORUBICIN HYDROCHLORIDE [Suspect]
     Active Substance: DOXORUBICIN HYDROCHLORIDE
     Dosage: TIME: 19:45
     Route: 042
     Dates: start: 20170813
  27. VINCRISTINE SULFATE [Suspect]
     Active Substance: VINCRISTINE SULFATE
     Indication: Diffuse large B-cell lymphoma
     Dosage: GIVEN FOR A TOTAL OF 6 CYCLES?TIME: 21:30
     Route: 042
     Dates: start: 20170809
  28. VINCRISTINE SULFATE [Suspect]
     Active Substance: VINCRISTINE SULFATE
     Dosage: TIME: 07:20
     Route: 042
     Dates: start: 20170810
  29. VINCRISTINE SULFATE [Suspect]
     Active Substance: VINCRISTINE SULFATE
     Dosage: TIME: 19:08
     Route: 042
     Dates: start: 20170810
  30. VINCRISTINE SULFATE [Suspect]
     Active Substance: VINCRISTINE SULFATE
     Dosage: TIME: 22:05
     Route: 042
     Dates: start: 20170810
  31. VINCRISTINE SULFATE [Suspect]
     Active Substance: VINCRISTINE SULFATE
     Dosage: TIME: 07:20
     Route: 042
     Dates: start: 20170811
  32. VINCRISTINE SULFATE [Suspect]
     Active Substance: VINCRISTINE SULFATE
     Dosage: TIME: 18:50
     Route: 042
     Dates: start: 20170811
  33. VINCRISTINE SULFATE [Suspect]
     Active Substance: VINCRISTINE SULFATE
     Dosage: TIME: 22:04
     Route: 042
     Dates: start: 20170811
  34. VINCRISTINE SULFATE [Suspect]
     Active Substance: VINCRISTINE SULFATE
     Dosage: TIME: 07:01
     Route: 042
     Dates: start: 20170812
  35. VINCRISTINE SULFATE [Suspect]
     Active Substance: VINCRISTINE SULFATE
     Dosage: TIME: 20:00
     Route: 042
     Dates: start: 20170812
  36. VINCRISTINE SULFATE [Suspect]
     Active Substance: VINCRISTINE SULFATE
     Dosage: TIME: 22:27
     Route: 042
     Dates: start: 20170812
  37. VINCRISTINE SULFATE [Suspect]
     Active Substance: VINCRISTINE SULFATE
     Dosage: TIME: 07:30
     Route: 042
     Dates: start: 20170813
  38. VINCRISTINE SULFATE [Suspect]
     Active Substance: VINCRISTINE SULFATE
     Dosage: TIME: 19:45
     Route: 042
     Dates: start: 20170813
  39. CYCLOPHOSPHAMIDE [Suspect]
     Active Substance: CYCLOPHOSPHAMIDE
     Indication: Diffuse large B-cell lymphoma
     Dosage: GIVEN FOR A TOTAL OF 6 CYCLES
     Route: 042
     Dates: start: 20170813
  40. PREDNISONE [Suspect]
     Active Substance: PREDNISONE
     Indication: Diffuse large B-cell lymphoma
     Dosage: GIVEN FOR A TOTAL OF 6 CYCLES
     Route: 048

REACTIONS (6)
  - Hypokalaemia [Unknown]
  - Neutropenia [Recovered/Resolved]
  - Ejection fraction decreased [Unknown]
  - Febrile neutropenia [Unknown]
  - Platelet count decreased [Unknown]
  - Thrombocytopenia [Unknown]

NARRATIVE: CASE EVENT DATE: 20170816
